FAERS Safety Report 6654396-0 (Version None)
Quarter: 2010Q1

REPORT INFORMATION
  Report Type: 
  Country: None (occurrence: None)
  Receive Date: 20100326
  Receipt Date: 20100318
  Transmission Date: 20100710
  Serious: Yes (Death, Life-Threatening)
  Sender: FDA-Public Use
  Company Number: JP-PFIZER INC-2010023950

PATIENT
  Age: 75 Year
  Sex: Female

DRUGS (5)
  1. AMLODIPINE BESYLATE [Suspect]
     Indication: OVERDOSE
     Dosage: 100 MG, UNK
     Route: 048
     Dates: start: 20100210, end: 20100210
  2. HALCION [Concomitant]
     Route: 048
  3. DEPAS [Concomitant]
     Route: 048
  4. AMPICILLIN SODIUM/SULBACTAM SODIUM [Concomitant]
     Indication: PNEUMONIA
     Dosage: 3 GRAM/DAY,
     Route: 041
     Dates: start: 20100210, end: 20100211
  5. ALBUMIN HUMAN [Concomitant]
     Indication: BLOOD PRESSURE INCREASED
     Dosage: 12.5 GRAM/DAY
     Route: 041
     Dates: start: 20100210, end: 20100210

REACTIONS (4)
  - CARDIOGENIC SHOCK [None]
  - CIRCULATORY COLLAPSE [None]
  - DRUG INTERACTION [None]
  - OVERDOSE [None]
